FAERS Safety Report 24736275 (Version 1)
Quarter: 2024Q4

REPORT INFORMATION
  Report Type: Spontaneous
  Country: US (occurrence: US)
  Receive Date: 20241216
  Receipt Date: 20241216
  Transmission Date: 20250115
  Serious: Yes (Hospitalization)
  Sender: AMARIN
  Company Number: US-Amarin Pharma  Inc-2024AMR000598

PATIENT
  Age: 73 Year
  Sex: Female

DRUGS (8)
  1. VASCEPA [Suspect]
     Active Substance: ICOSAPENT ETHYL
     Indication: Product used for unknown indication
     Dates: end: 2024
  2. VASCEPA [Suspect]
     Active Substance: ICOSAPENT ETHYL
     Dosage: RESTARTED
     Dates: start: 202412
  3. ELIQUIS [Concomitant]
     Active Substance: APIXABAN
     Indication: Product used for unknown indication
  4. PLAVIX [Concomitant]
     Active Substance: CLOPIDOGREL BISULFATE
     Indication: Product used for unknown indication
  5. DIGOXIN [Concomitant]
     Active Substance: DIGOXIN
     Indication: Product used for unknown indication
  6. GABAPENTIN [Concomitant]
     Active Substance: GABAPENTIN
     Indication: Product used for unknown indication
  7. VALSARTAN [Concomitant]
     Active Substance: VALSARTAN
     Indication: Product used for unknown indication
  8. NEBIVOLOL [Concomitant]
     Active Substance: NEBIVOLOL
     Indication: Product used for unknown indication

REACTIONS (4)
  - Unresponsive to stimuli [Recovered/Resolved]
  - Urine output decreased [Unknown]
  - Oxygen therapy [Not Recovered/Not Resolved]
  - Hospice care [Recovered/Resolved]
